FAERS Safety Report 4709760-3 (Version None)
Quarter: 2005Q3

REPORT INFORMATION
  Report Type: 
  Country: None (occurrence: None)
  Receive Date: 20050707
  Receipt Date: 20050615
  Transmission Date: 20060218
  Serious: Yes (Hospitalization, Other)
  Sender: FDA-Public Use
  Company Number: US_0411107828

PATIENT
  Age: 17 Year
  Sex: Female
  Weight: 94 kg

DRUGS (44)
  1. ZYPREXA [Suspect]
     Indication: ANXIETY
     Dosage: 7.5 MG
     Dates: start: 19981213, end: 20010822
  2. QUETIAPINE FUMARATE [Concomitant]
  3. RISPERIDONE [Concomitant]
  4. SERTRALINE [Concomitant]
  5. ZIPRASIDONE [Concomitant]
  6. PROVERA [Concomitant]
  7. LEXAPRO [Concomitant]
  8. BENADRYL [Concomitant]
  9. KLONOPIN [Concomitant]
  10. GLUCOPHAGE (METFORMIN /00082701/) [Concomitant]
  11. OXYBUTYNIN [Concomitant]
  12. TRIMETHOPRIM [Concomitant]
  13. ALLEGRA [Concomitant]
  14. PREVACID [Concomitant]
  15. MEDROXYPROGESTERONE [Concomitant]
  16. TAMIFLU [Concomitant]
  17. TRIMOX [Concomitant]
  18. ACETASOL [Concomitant]
  19. LORATADINE [Concomitant]
  20. ALBUTEROL [Concomitant]
  21. STARLIX [Concomitant]
  22. AUGMENTIN /00756801/ [Concomitant]
  23. CEFZIL [Concomitant]
  24. BIAXIN [Concomitant]
  25. RHINOCORT [Concomitant]
  26. CILOXAN (CIPROFLOXACIN HYDROCHLORIDE) [Concomitant]
  27. SINGULAIR (MONTELUKAST /01362601/) [Concomitant]
  28. DIFLUCAN [Concomitant]
  29. IBUPROFEN [Concomitant]
  30. PROMETHAZINE [Concomitant]
  31. VIOXX [Concomitant]
  32. NITROFURANTOIN [Concomitant]
  33. FLOXIN (OFLOXACIN) [Concomitant]
  34. GUAIFENEX [Concomitant]
  35. TUSSIONEX [Concomitant]
  36. Z-PAK (AZITHROMYCIN) [Concomitant]
  37. CEPHALEXIN [Concomitant]
  38. ZANTAC [Concomitant]
  39. PRILOSEC [Concomitant]
  40. CELEBREX [Concomitant]
  41. FLONASE [Concomitant]
  42. ERY-TAB (ERYTHROMYCIN /00020901/) [Concomitant]
  43. CEFZIL [Concomitant]
  44. ETODOLAC [Concomitant]

REACTIONS (13)
  - BLOOD CHOLESTEROL INCREASED [None]
  - COUGH [None]
  - CYSTITIS [None]
  - DEHYDRATION [None]
  - DIABETES MELLITUS NON-INSULIN-DEPENDENT [None]
  - DISEASE RECURRENCE [None]
  - HEPATIC CIRRHOSIS [None]
  - INFLUENZA [None]
  - STAPHYLOCOCCAL INFECTION [None]
  - URINARY TRACT INFECTION [None]
  - VISUAL DISTURBANCE [None]
  - WEIGHT DECREASED [None]
  - WEIGHT INCREASED [None]
